FAERS Safety Report 18551667 (Version 1)
Quarter: 2020Q4

REPORT INFORMATION
  Report Type: Report from Study
  Country: US (occurrence: US)
  Receive Date: 20201126
  Receipt Date: 20201126
  Transmission Date: 20210114
  Serious: Yes (Other)
  Sender: FDA-Public Use
  Company Number: US-MYLANLABS-2020M1063254

PATIENT
  Age: 27 Year
  Sex: Female
  Weight: 60.3 kg

DRUGS (19)
  1. ZITHROMAX [Concomitant]
     Active Substance: AZITHROMYCIN DIHYDRATE
     Indication: CYSTIC FIBROSIS
     Dosage: 500 MILLIGRAM, (TIW), (ANTI-INFLAMMATORY)
     Route: 048
     Dates: start: 2003
  2. CIPROFLOXACIN. [Concomitant]
     Active Substance: CIPROFLOXACIN
     Dosage: 150 MILLIGRAM, BID, (ANTIPSEUDOMONAL)
     Route: 048
     Dates: start: 20200107, end: 202001
  3. ALBUTEROL HFA [Concomitant]
     Active Substance: ALBUTEROL SULFATE
     Dosage: UNK, PRN, 1 VIAL,  NEBULIZED, (BRONCHODILATOR)
     Dates: start: 1992
  4. SINUS RINSE [Concomitant]
     Active Substance: SODIUM BICARBONATE\SODIUM CHLORIDE
     Indication: SINUSITIS
     Dosage: 1 DOSAGE FORM, (FLASH/NOSTRIL)
     Route: 045
     Dates: start: 201612
  5. PREVACID [Concomitant]
     Active Substance: LANSOPRAZOLE
     Indication: PANCREATIC FAILURE
     Dosage: 30 MILLIGRAM, BID, (PROTON PUMP INHIBITOR)
     Route: 048
     Dates: start: 2017
  6. ALLERGAN [Concomitant]
     Active Substance: PAPAIN
     Indication: NASAL CONGESTION
     Dosage: 180 MILLIGRAM, QD, (ALLERGY, ANTIHISTAMINE)
     Route: 048
     Dates: start: 201709
  7. TOBI [Suspect]
     Active Substance: TOBRAMYCIN
     Indication: PRODUCT USED FOR UNKNOWN INDICATION
     Dosage: UNK
     Dates: end: 20190311
  8. TOBI [Suspect]
     Active Substance: TOBRAMYCIN
     Dosage: UNK
     Dates: start: 20191025, end: 20191125
  9. CAYSTON [Suspect]
     Active Substance: AZTREONAM
     Indication: PRODUCT USED FOR UNKNOWN INDICATION
     Dosage: UNK
     Dates: start: 20191126, end: 20191225
  10. VITAMIN D3 [Concomitant]
     Active Substance: CHOLECALCIFEROL
     Indication: HYPOVITAMINOSIS
     Dosage: 4000 UNITS, QD, (VITAMIN SUPPLEMENT)
     Route: 048
     Dates: start: 2012
  11. ALBUTEROL HFA [Concomitant]
     Active Substance: ALBUTEROL SULFATE
     Indication: CYSTIC FIBROSIS
     Dosage: 2 PUFF, PRN, (BRONCHODILATOR)
     Dates: start: 1992
  12. MIRALAX [Concomitant]
     Active Substance: POLYETHYLENE GLYCOL 3350
     Indication: DISTAL INTESTINAL OBSTRUCTION SYNDROME
     Dosage: 17 GRAM, PRN, (LAXATIVE)
     Route: 048
     Dates: start: 2002
  13. TOBI [Suspect]
     Active Substance: TOBRAMYCIN
     Dosage: UNK
     Dates: end: 202002
  14. KLONOPIN [Suspect]
     Active Substance: CLONAZEPAM
     Indication: DEPRESSION
     Dosage: 0.25 MILLIGRAM, (ON DEMAND), (SEDATIVE)
     Route: 048
     Dates: start: 20181006, end: 20200211
  15. KLONOPIN [Suspect]
     Active Substance: CLONAZEPAM
     Indication: ANXIETY
  16. PULMOZYME [Concomitant]
     Active Substance: DORNASE ALFA
     Indication: CYSTIC FIBROSIS
     Dosage: 2.5 MILLILITER, QD, (MUCOLYTIC AGENTS)
     Dates: start: 1998
  17. MUCINEX [Concomitant]
     Active Substance: GUAIFENESIN
     Indication: CYSTIC FIBROSIS
     Dosage: 1200 MILLIGRAM, BID, (EXPECTORANT)
     Route: 048
     Dates: start: 2015
  18. CIPROFLOXACIN. [Concomitant]
     Active Substance: CIPROFLOXACIN
     Indication: SINUSITIS
     Dosage: 150 MILLIGRAM, BID, (ANTIPSEUDOMONAL)
     Route: 048
     Dates: start: 20191011, end: 20191021
  19. CIPROFLOXACIN. [Concomitant]
     Active Substance: CIPROFLOXACIN
     Indication: INFECTIVE PULMONARY EXACERBATION OF CYSTIC FIBROSIS
     Dosage: 150 MILLIGRAM, BID, (ANTIPSEUDOMONAL)
     Route: 048
     Dates: start: 20191130, end: 20191210

REACTIONS (3)
  - Chest discomfort [Unknown]
  - SARS-CoV-2 antibody test positive [Unknown]
  - Maternal exposure during pregnancy [Unknown]

NARRATIVE: CASE EVENT DATE: 20190311
